FAERS Safety Report 9125421 (Version 1)
Quarter: 2013Q1

REPORT INFORMATION
  Report Type: Spontaneous
  Country: US (occurrence: US)
  Receive Date: 20130227
  Receipt Date: 20130227
  Transmission Date: 20140127
  Serious: Yes (Death)
  Sender: FDA-Public Use
  Company Number: US-GLAXOSMITHKLINE-A1013675A

PATIENT
  Age: 70 Year
  Sex: Male

DRUGS (3)
  1. FLOLAN [Suspect]
     Indication: PULMONARY HYPERTENSION
     Dosage: 12.3NGKM CONTINUOUS
     Route: 065
     Dates: start: 20130207
  2. TRACLEER [Concomitant]
  3. LASIX [Concomitant]

REACTIONS (1)
  - Cardio-respiratory arrest [Fatal]
